FAERS Safety Report 4615650-7 (Version None)
Quarter: 2005Q2

REPORT INFORMATION
  Report Type: 
  Country: None (occurrence: None)
  Receive Date: 20050311
  Receipt Date: 20041110
  Transmission Date: 20051028
  Serious: No
  Sender: FDA-Public Use
  Company Number: 2004-BP-11671BP

PATIENT
  Sex: Female

DRUGS (7)
  1. SPIRIVA [Suspect]
     Indication: CHRONIC OBSTRUCTIVE PULMONARY DISEASE
     Dosage: 18 MCG (18 MCG, 1 IN 1 D), IH
     Route: 055
     Dates: start: 20041020, end: 20041106
  2. SPIRIVA [Suspect]
     Indication: PULMONARY HYPERTENSION
     Dosage: 18 MCG (18 MCG, 1 IN 1 D), IH
     Route: 055
     Dates: start: 20041020, end: 20041106
  3. SPIRIVA [Suspect]
     Indication: CHRONIC OBSTRUCTIVE PULMONARY DISEASE
     Dosage: 18 MCG (18 MCG, 1 IN 1 D), IH
     Route: 055
     Dates: start: 20041020, end: 20041106
  4. SPIRIVA [Suspect]
     Indication: PULMONARY HYPERTENSION
     Dosage: 18 MCG (18 MCG, 1 IN 1 D), IH
     Route: 055
     Dates: start: 20041020, end: 20041106
  5. ADVAIR DISKUS 100/50 [Concomitant]
  6. SINGULAIR (MONTELUKAST) [Concomitant]
  7. CARDIZEM [Concomitant]

REACTIONS (2)
  - DYSGEUSIA [None]
  - DYSPEPSIA [None]
